FAERS Safety Report 5591260-2 (Version None)
Quarter: 2008Q1

REPORT INFORMATION
  Report Type: 
  Country: None (occurrence: None)
  Receive Date: 20080115
  Receipt Date: 20061020
  Transmission Date: 20080703
  Serious: Yes (Other)
  Sender: FDA-Public Use
  Company Number: CA-ASTRAZENECA-2006UW20376

PATIENT
  Sex: Female

DRUGS (3)
  1. ARIMIDEX [Suspect]
     Indication: BREAST CANCER FEMALE
     Route: 048
  2. TAMOXIFEN [Concomitant]
     Indication: BREAST CANCER FEMALE
     Route: 048
     Dates: start: 20060301, end: 20060401
  3. FOSAMAX [Concomitant]
     Indication: BONE DISORDER
     Route: 048
     Dates: start: 20060927

REACTIONS (7)
  - AMNESIA [None]
  - DYSSTASIA [None]
  - EYE DISORDER [None]
  - FATIGUE [None]
  - JOINT WARMTH [None]
  - RESORPTION BONE INCREASED [None]
  - WEIGHT DECREASED [None]
